FAERS Safety Report 4696056-1 (Version None)
Quarter: 2005Q2

REPORT INFORMATION
  Report Type: 
  Country: None (occurrence: None)
  Receive Date: 20050621
  Receipt Date: 20041026
  Transmission Date: 20051028
  Serious: Yes (Hospitalization, Disabling)
  Sender: FDA-Public Use
  Company Number: GB-ROCHE-384310

PATIENT
  Age: 47 Year
  Sex: Female

DRUGS (8)
  1. CAPECITABINE [Suspect]
     Indication: BREAST CANCER
     Route: 048
     Dates: end: 20040917
  2. CAPECITABINE [Suspect]
     Dosage: ADMINISTERED DAILY FOR FOURTEEN DAYS, EVERY THREE WEEKS. PATIENT RECEIVED FOUR CYCLES PRIOR TO EVENT
     Route: 048
     Dates: end: 20041013
  3. CAPECITABINE [Suspect]
     Route: 048
     Dates: start: 20041104, end: 20041107
  4. CAPECITABINE [Suspect]
     Route: 048
     Dates: start: 20041109
  5. IXABEPILONE [Suspect]
     Indication: BREAST CANCER
     Dosage: INFUSED OVER 3 HOURS ON DAY 1 EVERY 21 DAYS. (1/1 CYCLE)
     Route: 042
  6. FENTANYL [Concomitant]
  7. HYDROMORPHONE HCL [Concomitant]
     Dates: start: 20040714
  8. CYCLIZINE [Concomitant]

REACTIONS (6)
  - AUTONOMIC NEUROPATHY [None]
  - BACK PAIN [None]
  - DIARRHOEA [None]
  - DYSPNOEA [None]
  - ORTHOSTATIC HYPOTENSION [None]
  - SINUS TACHYCARDIA [None]
